FAERS Safety Report 10243243 (Version 1)
Quarter: 2014Q2

REPORT INFORMATION
  Report Type: Spontaneous
  Country: FR (occurrence: FR)
  Receive Date: 20140618
  Receipt Date: 20140618
  Transmission Date: 20141212
  Serious: Yes (Death)
  Sender: FDA-Public Use
  Company Number: FR-JNJFOC-20140607854

PATIENT
  Age: 84 Year
  Sex: Male

DRUGS (4)
  1. XARELTO [Suspect]
     Indication: CEREBROVASCULAR ACCIDENT PROPHYLAXIS
     Route: 048
     Dates: start: 201402, end: 20140421
  2. XARELTO [Suspect]
     Indication: ATRIAL FIBRILLATION
     Route: 048
     Dates: start: 201402, end: 20140421
  3. LASILIX [Concomitant]
     Route: 065
  4. APROVEL [Concomitant]
     Route: 065

REACTIONS (3)
  - Subdural haematoma [Fatal]
  - Coma [Fatal]
  - Intracranial pressure increased [Fatal]
